FAERS Safety Report 4486398-7 (Version None)
Quarter: 2004Q4

REPORT INFORMATION
  Report Type: 
  Country: None (occurrence: None)
  Receive Date: 20041022
  Receipt Date: 20041011
  Transmission Date: 20050328
  Serious: Yes (Hospitalization)
  Sender: FDA-Public Use
  Company Number: 2004076345

PATIENT
  Age: 41 Year
  Sex: Male
  Weight: 104.3273 kg

DRUGS (9)
  1. ROGAINE [Suspect]
     Indication: ALOPECIA
     Dosage: 1 ML BID, TOPICAL
     Route: 061
     Dates: start: 20030101
  2. CLOPIDOGREL BISULFATE [Concomitant]
  3. ACETYLSAICYLIC ACID (ACETYLSAICYLIC ACID) [Concomitant]
  4. RAMIPRIL [Concomitant]
  5. METOPROLOL TARTRATE [Concomitant]
  6. ATORVASTATIN (ATORVASTATIN) [Concomitant]
  7. FENOFIBRATE [Concomitant]
  8. LITHIUM CARBONATE [Concomitant]
  9. QUETIAPINE FUMARATE (QUETIAPINE FUMARATE) [Concomitant]

REACTIONS (5)
  - BIPOLAR DISORDER [None]
  - BLOOD CHOLESTEROL INCREASED [None]
  - CORONARY ARTERY OCCLUSION [None]
  - MYOCARDIAL INFARCTION [None]
  - SKIN DESQUAMATION [None]
